FAERS Safety Report 7610048-1 (Version None)
Quarter: 2011Q3

REPORT INFORMATION
  Report Type: 
  Country: None (occurrence: None)
  Receive Date: 20110715
  Receipt Date: 20110706
  Transmission Date: 20111222
  Serious: Yes (Other)
  Sender: FDA-Public Use
  Company Number: US-ASTRAZENECA-2011SE40420

PATIENT
  Age: 25 Year
  Sex: Male

DRUGS (5)
  1. VANDETANIB [Suspect]
     Indication: THYROID CANCER
     Route: 048
     Dates: start: 20110621
  2. PROCHLORPERAZINE MELEATE [Concomitant]
     Route: 048
  3. HYDROCODONE BITARTRATE AND ACETAMINOPHEN [Concomitant]
     Dosage: 10-500 MG AS NEEDED
     Route: 048
  4. LASIX [Concomitant]
     Route: 048
  5. VALIUM [Concomitant]
     Route: 048

REACTIONS (4)
  - OEDEMA PERIPHERAL [None]
  - COUGH [None]
  - TRANSFUSION [None]
  - HAEMOGLOBIN DECREASED [None]
